FAERS Safety Report 7404157-X (Version None)
Quarter: 2011Q1

REPORT INFORMATION
  Report Type: 
  Country: None (occurrence: None)
  Receive Date: 20110331
  Receipt Date: 20110316
  Transmission Date: 20110831
  Serious: Yes (Other)
  Sender: FDA-Public Use
  Company Number: DSA_45201_2011

PATIENT
  Age: 61 Year
  Sex: Male

DRUGS (5)
  1. ENALAPRIL MALEATE [Suspect]
     Indication: PRODUCT USED FOR UNKNOWN INDICATION
     Dosage: (20MG, ORAL)
     Route: 048
     Dates: start: 20030701
  2. METOPROLOL SUCCINATE [Suspect]
     Indication: PRODUCT USED FOR UNKNOWN INDICATION
     Dosage: (50 MG QD ORAL)
     Route: 048
     Dates: start: 19990101
  3. MONO-CEDOCARD RETARD - ISOSORBIDE MONONITRATE [Suspect]
     Indication: CARDIAC DISORDER
     Dosage: (25 MG BID)
     Dates: start: 20080301, end: 20100117
  4. ASCAL /00002702/ [Concomitant]
  5. CRESTOR [Concomitant]

REACTIONS (1)
  - POLYNEUROPATHY CHRONIC [None]
